FAERS Safety Report 8990581 (Version 1)
Quarter: 2012Q4

REPORT INFORMATION
  Report Type: Report from Study
  Country: CA (occurrence: CA)
  Receive Date: 20121228
  Receipt Date: 20121228
  Transmission Date: 20130627
  Serious: Yes (Other)
  Sender: FDA-Public Use
  Company Number: CA-ROCHE-1174876

PATIENT
  Age: 55 Year
  Sex: Female
  Weight: 63.3 kg

DRUGS (1)
  1. XOLAIR [Suspect]
     Indication: ASTHMA
     Route: 058
     Dates: start: 20070207

REACTIONS (8)
  - Basal cell carcinoma [Unknown]
  - Squamous cell carcinoma [Unknown]
  - Blood pressure increased [Unknown]
  - Nasopharyngitis [Recovering/Resolving]
  - Pulmonary congestion [Unknown]
  - Seasonal allergy [Unknown]
  - Headache [Unknown]
  - Asthma [Unknown]
